FAERS Safety Report 23847327 (Version 4)
Quarter: 2024Q3

REPORT INFORMATION
  Report Type: Spontaneous
  Country: CN (occurrence: CN)
  Receive Date: 20240513
  Receipt Date: 20240702
  Transmission Date: 20241017
  Serious: Yes (Hospitalization, Other)
  Sender: BOEHRINGER INGELHEIM
  Company Number: CN-BoehringerIngelheim-2024-BI-027047

PATIENT
  Age: 50 Year
  Sex: Male

DRUGS (5)
  1. SPEVIGO [Suspect]
     Active Substance: SPESOLIMAB-SBZO
     Indication: Generalised pustular psoriasis
     Dates: start: 20240509
  2. APREMILAST [Concomitant]
     Active Substance: APREMILAST
     Indication: Dermatosis
  3. IBUPROFEN [Concomitant]
     Active Substance: IBUPROFEN
     Indication: Body temperature increased
     Dates: start: 20240506
  4. IBUPROFEN [Concomitant]
     Active Substance: IBUPROFEN
     Dates: start: 20240509
  5. PIPERACILLIN AND TAZOBACTAM [Concomitant]
     Active Substance: PIPERACILLIN SODIUM\TAZOBACTAM SODIUM
     Indication: Anti-infective therapy
     Dates: start: 20240509

REACTIONS (7)
  - Cardiac failure acute [Recovered/Resolved]
  - Respiratory failure [Recovering/Resolving]
  - Immune-mediated myocarditis [Recovered/Resolved]
  - Pneumonia [Recovering/Resolving]
  - Myocardial infarction [Unknown]
  - Immune-mediated myocarditis [Recovered/Resolved]
  - Blood pressure decreased [Unknown]

NARRATIVE: CASE EVENT DATE: 20240509
